FAERS Safety Report 6365321-4 (Version None)
Quarter: 2009Q3

REPORT INFORMATION
  Report Type: 
  Country: None (occurrence: None)
  Receive Date: 20090919
  Receipt Date: 20090812
  Transmission Date: 20100115
  Serious: No
  Sender: FDA-Public Use
  Company Number: US-ABBOTT-09P-163-0591358-00

PATIENT
  Sex: Female
  Weight: 52.21 kg

DRUGS (5)
  1. HUMIRA [Suspect]
     Indication: CROHN'S DISEASE
     Route: 058
     Dates: start: 20090728, end: 20090728
  2. HUMIRA [Suspect]
     Route: 058
     Dates: start: 20090801
  3. HUMIRA [Suspect]
     Route: 058
     Dates: start: 20090811, end: 20090811
  4. MERCAPTOPURINE [Concomitant]
     Indication: CROHN'S DISEASE
  5. ALLOPURINOL [Concomitant]
     Indication: CROHN'S DISEASE

REACTIONS (4)
  - CONJUNCTIVITIS INFECTIVE [None]
  - DRUG DOSE OMISSION [None]
  - FUNGAL INFECTION [None]
  - MOBILITY DECREASED [None]
